FAERS Safety Report 18631301 (Version 2)
Quarter: 2021Q1

REPORT INFORMATION
  Report Type: Spontaneous
  Country: US (occurrence: US)
  Receive Date: 20201218
  Receipt Date: 20210316
  Transmission Date: 20210419
  Serious: Yes (Death, Other)
  Sender: FDA-Public Use
  Company Number: US-SA-2020SA361447

PATIENT

DRUGS (1)
  1. ZANTAC [Suspect]
     Active Substance: RANITIDINE HYDROCHLORIDE
     Dosage: UNK
     Dates: start: 199505, end: 2019

REACTIONS (2)
  - Oesophageal carcinoma [Fatal]
  - Nasopharyngeal cancer [Fatal]

NARRATIVE: CASE EVENT DATE: 201904
